FAERS Safety Report 7608005 (Version 3)
Quarter: 2013Q2

REPORT INFORMATION
  Report Type: Spontaneous
  Country: US (occurrence: US)
  Receive Date: 20100927
  Receipt Date: 20130528
  Transmission Date: 20140414
  Serious: Yes (Other)
  Sender: FDA-Public Use
  Company Number: US-ASTRAZENECA-2010SE17356

PATIENT
  Age: 63 Year
  Sex: Female

DRUGS (2)
  1. ARIMIDEX [Suspect]
     Indication: BREAST CANCER
     Route: 048
  2. ARIMIDEX [Suspect]
     Indication: BREAST CANCER
     Route: 048

REACTIONS (5)
  - Basal cell carcinoma [Unknown]
  - Recurrent cancer [Unknown]
  - Anger [Unknown]
  - Heart rate increased [Unknown]
  - Drug dose omission [Unknown]
